FAERS Safety Report 8768381 (Version 1)
Quarter: 2012Q4

REPORT INFORMATION
  Report Type: 
  Country: GB (occurrence: GB)
  Receive Date: 20120906
  Receipt Date: 20120906
  Transmission Date: 20130627
  Serious: Yes (Disabling, Other)
  Sender: FDA-Public Use
  Company Number: GB-TEVA-356109ISR

PATIENT
  Age: 39 Year
  Sex: Male

DRUGS (8)
  1. DIAZEPAM [Suspect]
  2. DIAZEPAM [Suspect]
     Dosage: 2 Milligram Daily;
     Dates: end: 20120203
  3. LYRICA [Suspect]
     Indication: ANXIETY
     Dosage: 1800 Milligram Daily;
     Route: 048
     Dates: start: 201202
  4. METHADONE [Concomitant]
     Indication: DRUG DEPENDENCE
     Dosage: 40 ml Daily;
     Dates: start: 201202
  5. MIRTAZAPINE [Concomitant]
     Indication: DEPRESSION
     Route: 048
     Dates: start: 201202
  6. AMPHETAMINE [Concomitant]
  7. CANNABIS [Concomitant]
  8. TOBACCO [Concomitant]

REACTIONS (2)
  - Withdrawal syndrome [Not Recovered/Not Resolved]
  - Drug dependence [Not Recovered/Not Resolved]
